FAERS Safety Report 20698001 (Version 2)
Quarter: 2022Q3

REPORT INFORMATION
  Report Type: Report from Study
  Country: DE (occurrence: DE)
  Receive Date: 20220412
  Receipt Date: 20220809
  Transmission Date: 20221027
  Serious: Yes (Hospitalization)
  Sender: FDA-Public Use
  Company Number: DE-ABBVIE-22K-062-4352007-00

PATIENT
  Age: 59 Year
  Sex: Female

DRUGS (2)
  1. HUMIRA [Suspect]
     Active Substance: ADALIMUMAB
     Indication: Rheumatoid arthritis
     Route: 058
     Dates: start: 201905, end: 202003
  2. HUMIRA [Suspect]
     Active Substance: ADALIMUMAB
     Route: 058
     Dates: start: 202004

REACTIONS (16)
  - Gallbladder polyp [Recovered/Resolved]
  - Acoustic neuroma [Recovered/Resolved]
  - Polyarthritis [Recovered/Resolved]
  - Dyspepsia [Recovered/Resolved]
  - Rheumatoid arthritis [Unknown]
  - Spinal osteoarthritis [Unknown]
  - Vertigo positional [Unknown]
  - Bone erosion [Unknown]
  - Tinnitus [Unknown]
  - Benign neoplasm of thyroid gland [Unknown]
  - Benign lung neoplasm [Unknown]
  - Synovitis [Unknown]
  - Dyspnoea [Unknown]
  - Nasopharyngitis [Unknown]
  - Gastrointestinal infection [Unknown]
  - Dyspnoea exertional [Unknown]

NARRATIVE: CASE EVENT DATE: 20210517
